FAERS Safety Report 8988831 (Version 3)
Quarter: 2013Q1

REPORT INFORMATION
  Report Type: Spontaneous
  Country: US (occurrence: US)
  Receive Date: 20121228
  Receipt Date: 20130119
  Transmission Date: 20140127
  Serious: No
  Sender: FDA-Public Use
  Company Number: US-009507513-1212USA006426

PATIENT
  Age: 56 Year
  Sex: Female

DRUGS (3)
  1. VICTRELIS [Suspect]
     Indication: HEPATITIS C
     Dosage: 800 MG/EVERY 8 HOURS
     Route: 048
  2. RIBAPAK [Suspect]
  3. PEGASYS [Suspect]

REACTIONS (4)
  - Skin ulcer [Unknown]
  - Oral herpes [Unknown]
  - White blood cell count decreased [Unknown]
  - Rash generalised [Unknown]
